FAERS Safety Report 5786348-7 (Version None)
Quarter: 2008Q2

REPORT INFORMATION
  Report Type: 
  Country: None (occurrence: None)
  Receive Date: 20080624
  Receipt Date: 20080617
  Transmission Date: 20081010
  Serious: Yes (Hospitalization, Other)
  Sender: FDA-Public Use
  Company Number: JP-ALLERGAN-0709920US

PATIENT
  Sex: Female

DRUGS (1)
  1. BOTOX [Suspect]
     Indication: MUSCLE SPASTICITY
     Route: 030
     Dates: start: 20070824, end: 20070824

REACTIONS (3)
  - FALL [None]
  - HUMERUS FRACTURE [None]
  - LOWER LIMB FRACTURE [None]
